FAERS Safety Report 10741621 (Version 2)
Quarter: 2015Q1

REPORT INFORMATION
  Report Type: Spontaneous
  Country: JP (occurrence: JP)
  Receive Date: 20150127
  Receipt Date: 20150316
  Transmission Date: 20150721
  Serious: Yes (Hospitalization)
  Sender: FDA-Public Use
  Company Number: JP-009507513-1501JPN010350

PATIENT
  Age: 87 Year
  Sex: Male
  Weight: 58 kg

DRUGS (14)
  1. CEFTRIAXONE SODIUM. [Concomitant]
     Active Substance: CEFTRIAXONE SODIUM
     Dosage: DAILY DOSAGE UNKNOWN
     Route: 042
  2. LOSARTAN POTASSIUM. [Concomitant]
     Active Substance: LOSARTAN POTASSIUM
     Dosage: DAILY DOSAGE UNKNOWN
     Route: 048
  3. PLETAAL [Concomitant]
     Active Substance: CILOSTAZOL
     Dosage: DAILY DOSAGE UNKNOWN
     Route: 048
  4. MUCOSAL L [Concomitant]
     Dosage: DAILY DOSAGE UNKNOWN
     Route: 048
  5. IRBETAN [Concomitant]
     Active Substance: IRBESARTAN
     Dosage: DAILY DOSAGE UNKNOWN
     Route: 048
  6. KALIMATE [Concomitant]
     Active Substance: CALCIUM POLYSTYRENE SULFONATE
     Dosage: DAILY DOSAGE UNKNOWN
     Route: 048
  7. YODEL S [Concomitant]
     Active Substance: SENNA LEAF\SENNOSIDES\SENNOSIDES A AND B
     Dosage: DAILY DOSAGE UNKNOWN
     Route: 048
  8. CLARITIN [Suspect]
     Active Substance: LORATADINE
     Indication: ASTHMA
     Dosage: 10 MG ONCE A DAY
     Route: 048
     Dates: end: 20141207
  9. MAGMITT [Concomitant]
     Active Substance: MAGNESIUM OXIDE
     Dosage: DAILY DOSAGE UNKNOWN
     Route: 048
  10. FEBURIC [Suspect]
     Active Substance: FEBUXOSTAT
     Indication: HYPERURICAEMIA
     Dosage: 40 MG ONCE A DAY
     Route: 048
     Dates: end: 20141207
  11. ATELEC [Suspect]
     Active Substance: CILNIDIPINE
     Indication: HYPERTENSION
     Dosage: 10 MG TWICE A DAY
     Route: 048
  12. ULTIBRO BREEZEHALER [Concomitant]
     Dosage: DAILY DOSAGE UNKNOWN
     Route: 055
  13. PLAVIX [Concomitant]
     Active Substance: CLOPIDOGREL BISULFATE
     Dosage: DAILY DOSAGE UNKNOWN
     Route: 048
  14. LANSOPRAZOLE. [Concomitant]
     Active Substance: LANSOPRAZOLE
     Dosage: DAILY DOSAGE UNKNOWN
     Route: 048

REACTIONS (2)
  - Electrocardiogram QT prolonged [Recovering/Resolving]
  - Ventricular tachycardia [Recovering/Resolving]

NARRATIVE: CASE EVENT DATE: 20141207
